FAERS Safety Report 9830522 (Version 1)
Quarter: 2014Q1

REPORT INFORMATION
  Report Type: Spontaneous
  Country: US (occurrence: US)
  Receive Date: 20140120
  Receipt Date: 20140120
  Transmission Date: 20141002
  Serious: Yes (Other)
  Sender: FDA-Public Use
  Company Number: US-BRISTOL-MYERS SQUIBB COMPANY-20029021

PATIENT
  Sex: Female

DRUGS (3)
  1. KOMBIGLYZE XR [Suspect]
  2. VICTOZA [Suspect]
  3. BROMOCRIPTINE MESYLATE [Suspect]

REACTIONS (1)
  - Gastritis [Unknown]
